FAERS Safety Report 9581237 (Version 2)
Quarter: 2013Q4

REPORT INFORMATION
  Report Type: Spontaneous
  Country: ES (occurrence: ES)
  Receive Date: 20131002
  Receipt Date: 20131010
  Transmission Date: 20140711
  Serious: Yes (Hospitalization)
  Sender: FDA-Public Use
  Company Number: ES-B.I. PHARMACEUTICALS,INC./RIDGEFIELD-2013-BI-30828ES

PATIENT
  Age: 78 Year
  Sex: Female

DRUGS (6)
  1. PRADAXA [Suspect]
     Indication: ATRIAL FIBRILLATION
     Dosage: 300 MG
     Route: 048
     Dates: start: 20130719, end: 20130819
  2. BISOPROLOL [Concomitant]
     Dosage: 3.75 MG
  3. OMEPRAZOL [Concomitant]
     Indication: GASTRITIS
     Dosage: 40 MG
     Route: 048
  4. LOSARTAN [Concomitant]
     Indication: HYPERTENSION
     Dosage: 50 MG
     Route: 048
  5. SIMVASTATINA [Concomitant]
     Indication: DYSLIPIDAEMIA
     Dosage: 10 MG
     Route: 048
  6. DILUTOL 10 MG (TORASEMIDA) [Concomitant]
     Indication: CARDIAC FAILURE
     Dosage: 5 MG
     Route: 048

REACTIONS (2)
  - Hypertransaminasaemia [Recovered/Resolved]
  - Hyperbilirubinaemia [Not Recovered/Not Resolved]
